FAERS Safety Report 19008914 (Version 1)
Quarter: 2021Q1

REPORT INFORMATION
  Report Type: Report from Study
  Country: US (occurrence: US)
  Receive Date: 20210315
  Receipt Date: 20210315
  Transmission Date: 20210420
  Serious: Yes (Hospitalization)
  Sender: FDA-Public Use
  Company Number: US-TAKEDA-2020TUS045692

PATIENT
  Age: 66 Year
  Sex: Female

DRUGS (1)
  1. GAMMAGARD LIQUID [Suspect]
     Active Substance: HUMAN IMMUNOGLOBULIN G
     Dosage: UNK
     Route: 065

REACTIONS (8)
  - Malaise [Unknown]
  - Pain [Unknown]
  - Knee operation [Unknown]
  - Reading disorder [Unknown]
  - Feeling abnormal [Unknown]
  - Incorrect product administration duration [Unknown]
  - Insurance issue [Unknown]
  - Eye pain [Unknown]

NARRATIVE: CASE EVENT DATE: 20200929
